FAERS Safety Report 5792164-2 (Version None)
Quarter: 2008Q2

REPORT INFORMATION
  Report Type: 
  Country: None (occurrence: None)
  Receive Date: 20080626
  Receipt Date: 20080325
  Transmission Date: 20081010
  Serious: No
  Sender: FDA-Public Use
  Company Number: US-BOEHRINGER INGELHEIM GMBH, GERMANY-2005-BP-12635BP

PATIENT
  Sex: Male

DRUGS (22)
  1. MIRAPEX [Suspect]
     Indication: PARKINSON'S DISEASE
     Route: 048
     Dates: start: 19990628, end: 20040601
  2. SINEMET [Concomitant]
     Indication: PARKINSON'S DISEASE
  3. RILUZOLE [Concomitant]
     Indication: PARKINSON'S DISEASE
     Dates: start: 19991101, end: 20010101
  4. AMANTADINE HCL [Concomitant]
     Dates: start: 20040812, end: 20040901
  5. STALEVO 100 [Concomitant]
     Indication: PARKINSON'S DISEASE
     Dates: start: 20040223
  6. REQUIP [Concomitant]
     Indication: PARKINSON'S DISEASE
     Dates: start: 20031125
  7. SINEMET CR [Concomitant]
     Indication: PARKINSON'S DISEASE
     Dates: start: 20010501
  8. VIAGRA [Concomitant]
     Indication: ERECTILE DYSFUNCTION
     Route: 048
     Dates: start: 20001101
  9. ZOLOFT [Concomitant]
     Indication: DEPRESSION
     Dates: start: 20030501
  10. TRAZODONE HCL [Concomitant]
     Dates: start: 20031101
  11. BEXTRA [Concomitant]
     Indication: PAIN IN EXTREMITY
     Dates: start: 20030225
  12. BACTRIM DS [Concomitant]
     Dates: start: 20030728
  13. IBUROFEN [Concomitant]
     Indication: PAIN
  14. DETROL LA [Concomitant]
     Dates: start: 20070101
  15. VICODIN [Concomitant]
     Indication: PAIN
     Dates: start: 20030630
  16. VIOXX [Concomitant]
     Dates: start: 20041019
  17. CIALIS [Concomitant]
     Dates: start: 20040812
  18. FLOMAX [Concomitant]
     Route: 048
     Dates: start: 20060818
  19. AZILECT [Concomitant]
     Route: 048
     Dates: start: 20060713
  20. AMBIEN [Concomitant]
     Indication: SLEEP DISORDER
     Dates: start: 20050401
  21. AMITRIPTYLINE HCL [Concomitant]
     Dates: start: 20050101, end: 20050101
  22. TASMAR [Concomitant]
     Indication: PARKINSON'S DISEASE

REACTIONS (11)
  - DEPRESSION [None]
  - FATIGUE [None]
  - HYPERPHAGIA [None]
  - JOINT SWELLING [None]
  - MUSCULAR WEAKNESS [None]
  - MUSCULOSKELETAL STIFFNESS [None]
  - PATHOLOGICAL GAMBLING [None]
  - STRESS [None]
  - SUICIDAL IDEATION [None]
  - TREMOR [None]
  - WEIGHT INCREASED [None]
